FAERS Safety Report 16530726 (Version 1)
Quarter: 2019Q3

REPORT INFORMATION
  Report Type: Report from Study
  Country: None (occurrence: AR)
  Receive Date: 20190704
  Receipt Date: 20190704
  Transmission Date: 20191004
  Serious: Yes (Other)
  Sender: FDA-Public Use
  Company Number: AR-ABBVIE-17K-007-1942789-00

PATIENT
  Age: 69 Year
  Sex: Female

DRUGS (1)
  1. HUMIRA [Suspect]
     Active Substance: ADALIMUMAB
     Indication: PSORIATIC ARTHROPATHY
     Route: 058
     Dates: start: 20130108

REACTIONS (4)
  - Gait disturbance [Unknown]
  - Fall [Unknown]
  - Pain in extremity [Recovered/Resolved]
  - Patella fracture [Recovered/Resolved with Sequelae]

NARRATIVE: CASE EVENT DATE: 201702
